FAERS Safety Report 4533621-6 (Version None)
Quarter: 2004Q4

REPORT INFORMATION
  Report Type: 
  Country: None (occurrence: None)
  Receive Date: 20041221
  Receipt Date: 20041216
  Transmission Date: 20050328
  Serious: Yes (Hospitalization)
  Sender: FDA-Public Use
  Company Number: US-BRISTOL-MYERS SQUIBB COMPANY-12798583

PATIENT
  Age: 77 Year
  Sex: Female
  Weight: 81 kg

DRUGS (8)
  1. COUMADIN [Suspect]
     Indication: ATRIAL FIBRILLATION
     Route: 048
  2. THYROID TAB [Concomitant]
  3. PRILOSEC [Concomitant]
  4. BLOOD PRESSURE PILL [Concomitant]
  5. MULTI-VITAMINS [Concomitant]
  6. POTASSIUM [Concomitant]
  7. ENBREL [Concomitant]
     Route: 051
  8. FORTEO [Concomitant]
     Dosage: SELF INJECTION DAILY OF FORTEO
     Route: 051

REACTIONS (3)
  - CONTUSION [None]
  - DRUG LEVEL CHANGED [None]
  - FEELING ABNORMAL [None]
